FAERS Safety Report 4399167-3 (Version None)
Quarter: 2004Q3

REPORT INFORMATION
  Report Type: 
  Country: None (occurrence: None)
  Receive Date: 20040715
  Receipt Date: 20040715
  Transmission Date: 20050211
  Serious: Yes (Death)
  Sender: FDA-Public Use
  Company Number: None

PATIENT
  Age: 85 Year
  Sex: Male
  Weight: 66.2252 kg

DRUGS (19)
  1. GEMCITABINE 134 MG [Suspect]
     Indication: PANCREATIC CARCINOMA METASTATIC
     Dosage: 134 MG Q2WEEKS INTRAVENOUS
     Route: 042
     Dates: start: 20040601, end: 20040614
  2. IRINOTECAN 196 MG [Suspect]
     Indication: PANCREATIC CARCINOMA METASTATIC
     Dosage: 196 MG Q2WEEKS INTRAVENOUS
     Route: 042
     Dates: start: 20040614, end: 20040614
  3. DURAGESIC [Concomitant]
  4. PANOAKASE [Concomitant]
  5. LOTENSIN [Concomitant]
  6. NORVASC [Concomitant]
  7. TOPROL-XL [Concomitant]
  8. ZOCOR [Concomitant]
  9. COMPAZINE [Concomitant]
  10. LORTAB [Concomitant]
  11. EFFEXOR [Concomitant]
  12. LOVENOX [Concomitant]
  13. COSOPT OPTH SOLN [Concomitant]
  14. PLAVIX [Concomitant]
  15. CENTRUM [Concomitant]
  16. NOVULIN N [Concomitant]
  17. AMBIEN [Concomitant]
  18. GAS X [Concomitant]
  19. TYLENOL [Concomitant]

REACTIONS (2)
  - MALIGNANT NEOPLASM PROGRESSION [None]
  - PERFORMANCE STATUS DECREASED [None]
